FAERS Safety Report 5316605-X (Version None)
Quarter: 2007Q2

REPORT INFORMATION
  Report Type: 
  Country: None (occurrence: None)
  Receive Date: 20070504
  Receipt Date: 20070424
  Transmission Date: 20071010
  Serious: Yes (Hospitalization)
  Sender: FDA-Public Use
  Company Number: US-AMGEN-US221295

PATIENT
  Sex: Female

DRUGS (16)
  1. EPOGEN [Suspect]
     Indication: DIALYSIS
     Route: 042
  2. GENTAMICIN [Concomitant]
  3. CALCIUM ACETATE [Concomitant]
  4. HEPARIN [Concomitant]
  5. METOPROLOL SUCCINATE [Concomitant]
  6. LISINOPRIL [Concomitant]
  7. MINOXIDIL [Concomitant]
  8. PROTONIX [Concomitant]
  9. NORVASC [Concomitant]
  10. TYLENOL [Concomitant]
  11. INSULIN [Concomitant]
  12. ZOFRAN [Concomitant]
  13. LEVAQUIN [Concomitant]
  14. DUONEB [Concomitant]
  15. ZOLPIDEM [Concomitant]
  16. PRIMAXIN [Concomitant]

REACTIONS (3)
  - HAEMOGLOBIN DECREASED [None]
  - SURGERY [None]
  - TRANSFUSION [None]
